FAERS Safety Report 8510835-1 (Version None)
Quarter: 2012Q3

REPORT INFORMATION
  Report Type: 
  Country: None (occurrence: None)
  Receive Date: 20120716
  Receipt Date: 20120702
  Transmission Date: 20120928
  Serious: Yes (Death)
  Sender: FDA-Public Use
  Company Number: GB-RANBAXY-2012R1-56878

PATIENT
  Age: 40 Year
  Sex: Male
  Weight: 104 kg

DRUGS (12)
  1. CLARITHROMYCIN [Suspect]
     Indication: INFECTION
     Dosage: 500 MG, BID
     Route: 048
     Dates: start: 20111028, end: 20111030
  2. MULTI-VITAMIN [Concomitant]
     Indication: PRODUCT USED FOR UNKNOWN INDICATION
     Dosage: UNK
     Route: 065
  3. VENTOLIN [Concomitant]
     Indication: PRODUCT USED FOR UNKNOWN INDICATION
     Dosage: UNK
     Route: 065
  4. DIAZEPAM [Concomitant]
     Indication: ANXIETY
     Dosage: 2 MG, AS NECESSARY
     Route: 048
     Dates: start: 20111019
  5. METHADONE HCL [Interacting]
     Indication: PAIN
     Dosage: 90 MG, QD
     Route: 048
     Dates: start: 20111025, end: 20111030
  6. ORAMORPH SR [Concomitant]
     Indication: CROHN'S DISEASE
     Dosage: 100 MG, QD
     Route: 048
     Dates: start: 20110707, end: 20111025
  7. LANSOPRAZOLE [Concomitant]
     Indication: GASTRITIS
     Dosage: 30 MG, QD
     Route: 048
     Dates: start: 20111019
  8. HUMIRA [Concomitant]
     Dosage: UNK
     Route: 030
     Dates: start: 20111005
  9. ADCAL-D3 [Concomitant]
     Indication: CROHN'S DISEASE
     Dosage: 1 DF, BID
     Route: 048
     Dates: start: 20110808
  10. CLARITHROMYCIN [Interacting]
     Indication: LOWER RESPIRATORY TRACT INFECTION
  11. HUMIRA [Concomitant]
     Indication: CROHN'S DISEASE
     Dosage: UNK
     Route: 058
     Dates: start: 20111005, end: 20111019
  12. ORAMORPH SR [Concomitant]
     Indication: PAIN
     Dosage: 100 MG, QD
     Route: 048
     Dates: end: 20111027

REACTIONS (2)
  - DEATH [None]
  - INHIBITORY DRUG INTERACTION [None]
